FAERS Safety Report 17275927 (Version 1)
Quarter: 2020Q1

REPORT INFORMATION
  Report Type: Report from Study
  Country: GB (occurrence: GB)
  Receive Date: 20200116
  Receipt Date: 20200116
  Transmission Date: 20200409
  Serious: Yes (Other)
  Sender: FDA-Public Use
  Company Number: GB-SAMSUNG BIOEPIS-SB-2020-00665

PATIENT
  Sex: Male

DRUGS (1)
  1. IMRALDI [Suspect]
     Active Substance: ADALIMUMAB
     Indication: ANKYLOSING SPONDYLITIS
     Route: 058
     Dates: start: 20190412

REACTIONS (7)
  - Nervous system disorder [Unknown]
  - Ill-defined disorder [Unknown]
  - Multiple sclerosis [Unknown]
  - Adverse reaction [Unknown]
  - Atrial fibrillation [Unknown]
  - Malaise [Unknown]
  - Pain [Not Recovered/Not Resolved]
